FAERS Safety Report 8846701 (Version 1)
Quarter: 2012Q4

REPORT INFORMATION
  Report Type: 
  Country: US (occurrence: US)
  Receive Date: 20121017
  Receipt Date: 20121017
  Transmission Date: 20130627
  Serious: Yes (Other)
  Sender: FDA-Public Use
  Company Number: US-CELGENEUS-163-21880-11050610

PATIENT
  Sex: Male

DRUGS (2)
  1. REVLIMID [Suspect]
     Indication: MULTIPLE MYELOMA
     Dosage: 25 Milligram
     Route: 048
     Dates: start: 201102
  2. COUMADIN [Concomitant]
     Indication: ANTICOAGULANT THERAPY
     Route: 065

REACTIONS (7)
  - Deep vein thrombosis [Unknown]
  - Joint injury [Unknown]
  - Rash [Recovered/Resolved]
  - Dry mouth [Unknown]
  - Constipation [Recovered/Resolved]
  - Diarrhoea [Unknown]
  - Fatigue [Recovered/Resolved]
